FAERS Safety Report 6183681-4 (Version None)
Quarter: 2009Q2

REPORT INFORMATION
  Report Type: 
  Country: None (occurrence: None)
  Receive Date: 20090508
  Receipt Date: 20090429
  Transmission Date: 20091009
  Serious: Yes (Hospitalization)
  Sender: FDA-Public Use
  Company Number: TW-TEVA-189507ISR

PATIENT
  Sex: Male
  Weight: 64 kg

DRUGS (9)
  1. PACLITAXEL [Suspect]
     Indication: NON-SMALL CELL LUNG CANCER
     Dates: start: 20090218, end: 20090218
  2. CARBOPLATIN [Suspect]
     Indication: NON-SMALL CELL LUNG CANCER
     Dates: start: 20090218, end: 20090218
  3. CP-751,871 [Suspect]
     Indication: NON-SMALL CELL LUNG CANCER
  4. METOCLOPRAMIDE [Concomitant]
     Dates: start: 20090225, end: 20090309
  5. AMBROXOL HYDROCHLORIDE [Concomitant]
     Dates: start: 20090225, end: 20090309
  6. PYRIDOXINE [Concomitant]
     Dates: start: 20090225, end: 20090309
  7. PARACETAMOL [Concomitant]
     Dates: start: 20090302, end: 20090305
  8. RED BLOOD CELLS [Concomitant]
     Dates: start: 20090304, end: 20090304
  9. DIPHENHYDRAMINE HCL [Concomitant]
     Dates: start: 20090304, end: 20090304

REACTIONS (2)
  - CEREBROVASCULAR ACCIDENT [None]
  - PNEUMONIA [None]
